FAERS Safety Report 9037135 (Version 1)
Quarter: 2013Q1

REPORT INFORMATION
  Report Type: Report from Study
  Country: US (occurrence: US)
  Receive Date: 20130129
  Receipt Date: 20130129
  Transmission Date: 20140127
  Serious: No
  Sender: FDA-Public Use
  Company Number: US-ABBOTT-12P-163-0892087-00

PATIENT
  Age: 41 None
  Sex: Female
  Weight: 76.73 kg

DRUGS (5)
  1. HUMIRA 40 MG/0.8 ML PEN [Suspect]
     Indication: PSORIASIS
     Dosage: ONCE
     Dates: start: 201111, end: 201111
  2. HUMIRA 40 MG/0.8 ML PEN [Suspect]
     Dosage: ONCE
     Dates: start: 20111128, end: 20111128
  3. ESCITALOPRAM [Concomitant]
     Indication: DEPRESSION
  4. UNKNOWN MEDICATION [Concomitant]
     Indication: MIGRAINE
  5. ENBREL [Concomitant]
     Indication: PRODUCT USED FOR UNKNOWN INDICATION

REACTIONS (6)
  - Gastroenteritis viral [Recovered/Resolved]
  - Sinusitis [Recovered/Resolved]
  - Pharyngitis streptococcal [Recovered/Resolved]
  - Nasopharyngitis [Not Recovered/Not Resolved]
  - Cough [Not Recovered/Not Resolved]
  - Psoriasis [Not Recovered/Not Resolved]
